FAERS Safety Report 23497269 (Version 1)
Quarter: 2024Q1

REPORT INFORMATION
  Report Type: Spontaneous
  Country: US (occurrence: US)
  Receive Date: 20240208
  Receipt Date: 20240208
  Transmission Date: 20240410
  Serious: No
  Sender: FDA-Public Use
  Company Number: US-JNJFOC-20240169224

PATIENT
  Age: 60 Year
  Sex: Female
  Weight: 83.99 kg

DRUGS (2)
  1. STELARA [Suspect]
     Active Substance: USTEKINUMAB
     Indication: Product used for unknown indication
     Route: 058
     Dates: start: 20231222
  2. ASPIRIN [Concomitant]
     Active Substance: ASPIRIN
     Indication: Cardiac murmur

REACTIONS (1)
  - Alopecia [Not Recovered/Not Resolved]
